FAERS Safety Report 17010603 (Version 2)
Quarter: 2019Q4

REPORT INFORMATION
  Report Type: Spontaneous
  Country: US (occurrence: US)
  Receive Date: 20191108
  Receipt Date: 20191119
  Transmission Date: 20200122
  Serious: No
  Sender: FDA-Public Use
  Company Number: US-BAXTER-2019BAX022701

PATIENT
  Sex: Male

DRUGS (1)
  1. REGULAR HUMAN INSULIN [Suspect]
     Active Substance: INSULIN HUMAN
     Indication: PRODUCT USED FOR UNKNOWN INDICATION
     Dosage: APPROX. 50 ML WAS OUT OF BAG (1/2 OF BAG)
     Route: 042
     Dates: start: 20191018, end: 20191018

REACTIONS (8)
  - Product packaging confusion [Unknown]
  - Product selection error [Unknown]
  - Physical product label issue [Unknown]
  - Blood glucose increased [Recovered/Resolved]
  - Product label confusion [Unknown]
  - Stress [Unknown]
  - Product label issue [Unknown]
  - Wrong product administered [Unknown]

NARRATIVE: CASE EVENT DATE: 20191018
